FAERS Safety Report 7043791-6 (Version None)
Quarter: 2010Q4

REPORT INFORMATION
  Report Type: 
  Country: None (occurrence: None)
  Receive Date: 20101008
  Receipt Date: 20101008
  Transmission Date: 20110411
  Serious: Yes (Other)
  Sender: FDA-Public Use
  Company Number: None

PATIENT
  Sex: Female
  Weight: 77.1115 kg

DRUGS (3)
  1. OXYCONTIN [Suspect]
     Indication: BACK PAIN
     Dosage: 2 TABS 2X'S DAILY 1 @ NOON (2 TAB PO BID 1 IN NOON) 5 X'S DAILY ORAL
     Route: 048
     Dates: start: 20100921, end: 20100928
  2. OXYCONTIN [Suspect]
     Indication: MUSCULOSKELETAL PAIN
     Dosage: 2 TABS 2X'S DAILY 1 @ NOON (2 TAB PO BID 1 IN NOON) 5 X'S DAILY ORAL
     Route: 048
     Dates: start: 20100921, end: 20100928
  3. OXYCONTIN [Suspect]
     Indication: PAIN IN EXTREMITY
     Dosage: 2 TABS 2X'S DAILY 1 @ NOON (2 TAB PO BID 1 IN NOON) 5 X'S DAILY ORAL
     Route: 048
     Dates: start: 20100921, end: 20100928

REACTIONS (3)
  - GASTROINTESTINAL PAIN [None]
  - INADEQUATE ANALGESIA [None]
  - PRODUCT FORMULATION ISSUE [None]
